FAERS Safety Report 5088000-2 (Version None)
Quarter: 2006Q3

REPORT INFORMATION
  Report Type: 
  Country: None (occurrence: None)
  Receive Date: 20060727
  Receipt Date: 20060418
  Transmission Date: 20061208
  Serious: Yes (Other)
  Sender: FDA-Public Use
  Company Number: 2006037665

PATIENT
  Age: 75 Year
  Sex: Female

DRUGS (4)
  1. LYRICA [Suspect]
     Indication: FIBROMYALGIA
     Dosage: (75 MG)
     Dates: start: 20051107, end: 20051114
  2. LYRICA [Suspect]
     Indication: HEADACHE
     Dosage: (75 MG)
     Dates: start: 20051107, end: 20051114
  3. FIORICET [Concomitant]
  4. IBANDRONATE SODIUM (IBANDRONATE SODIUM) [Concomitant]

REACTIONS (2)
  - OEDEMA [None]
  - RHINORRHOEA [None]
